FAERS Safety Report 4708664-X (Version None)
Quarter: 2005Q3

REPORT INFORMATION
  Report Type: 
  Country: None (occurrence: None)
  Receive Date: 20050706
  Receipt Date: 20050630
  Transmission Date: 20060218
  Serious: Yes (Hospitalization)
  Sender: FDA-Public Use
  Company Number: 05-NIP00064(0)

PATIENT
  Age: 73 Year
  Sex: Male

DRUGS (17)
  1. NIPENT [Suspect]
     Indication: CHRONIC LYMPHOCYTIC LEUKAEMIA
     Dosage: 7.6 MG, INTRAVENOUS
     Route: 030
     Dates: start: 20050628
  2. CYTOXAN [Suspect]
     Indication: CHRONIC LYMPHOCYTIC LEUKAEMIA
     Dosage: 1140 MG INTRAVENOUS
     Route: 042
  3. ALEVE [Concomitant]
  4. ASPIRIN [Concomitant]
  5. FLOMAX [Concomitant]
  6. PROCARDIA [Concomitant]
  7. LOZOL [Concomitant]
  8. ALLOPURINOL [Concomitant]
  9. COMPAZINE [Concomitant]
  10. ACYCLOVIR [Concomitant]
  11. BACTRIM DS [Concomitant]
  12. BENADRYL [Concomitant]
  13. DEXAMETHASONE [Concomitant]
  14. KYTRIL [Concomitant]
  15. TYLENOL [Concomitant]
  16. MIRACLE MOJTHWASH (MOUTHWASH) [Concomitant]
  17. DIFLUCAN [Concomitant]

REACTIONS (5)
  - DEHYDRATION [None]
  - FLUID INTAKE REDUCED [None]
  - MALAISE [None]
  - PYREXIA [None]
  - TUMOUR LYSIS SYNDROME [None]
